FAERS Safety Report 18917537 (Version 1)
Quarter: 2021Q1

REPORT INFORMATION
  Report Type: Spontaneous
  Country: US (occurrence: US)
  Receive Date: 20210219
  Receipt Date: 20210219
  Transmission Date: 20210420
  Serious: No
  Sender: FDA-Public Use
  Company Number: US-PERRIGO-20US017671

PATIENT
  Age: 79 Year
  Sex: Male
  Weight: 70.3 kg

DRUGS (1)
  1. LOPERAMIDE HYDROCHLORIDE. [Suspect]
     Active Substance: LOPERAMIDE HYDROCHLORIDE
     Indication: DIARRHOEA
     Dosage: 2 MG AT 1600 AND 1 MG AT 2300
     Route: 048
     Dates: start: 20201130, end: 20201130

REACTIONS (3)
  - Intentional product use issue [Recovered/Resolved]
  - Dyschezia [Recovering/Resolving]
  - Abnormal faeces [Recovering/Resolving]

NARRATIVE: CASE EVENT DATE: 20201130
